FAERS Safety Report 14882280 (Version 2)
Quarter: 2018Q2

REPORT INFORMATION
  Report Type: Report from Study
  Country: US (occurrence: US)
  Receive Date: 20180511
  Receipt Date: 20180518
  Transmission Date: 20180711
  Serious: Yes (Hospitalization, Other)
  Sender: FDA-Public Use
  Company Number: US-GILEAD-2018-0337297

PATIENT
  Age: 55 Year
  Sex: Female

DRUGS (20)
  1. SYNTHROID [Concomitant]
     Active Substance: LEVOTHYROXINE SODIUM
  2. ZOLOFT [Concomitant]
     Active Substance: SERTRALINE HYDROCHLORIDE
  3. DIGOXIN. [Concomitant]
     Active Substance: DIGOXIN
  4. FENOFIBRATE. [Concomitant]
     Active Substance: FENOFIBRATE
  5. TORSEMIDE. [Concomitant]
     Active Substance: TORSEMIDE
  6. POTASSIUM [Concomitant]
     Active Substance: POTASSIUM
  7. LIPITOR [Concomitant]
     Active Substance: ATORVASTATIN CALCIUM
  8. POTASSIUM [Concomitant]
     Active Substance: POTASSIUM
  9. COUMADIN [Concomitant]
     Active Substance: WARFARIN SODIUM
  10. ZOLOFT [Concomitant]
     Active Substance: SERTRALINE HYDROCHLORIDE
  11. AMBRISENTAN [Suspect]
     Active Substance: AMBRISENTAN
     Indication: PULMONARY ARTERIAL HYPERTENSION
     Dosage: 10 MG, QD
     Route: 065
     Dates: start: 20100128
  12. MAG-OX [Concomitant]
     Active Substance: MAGNESIUM OXIDE
  13. FENOFIBRATE. [Concomitant]
     Active Substance: FENOFIBRATE
  14. LIPITOR [Concomitant]
     Active Substance: ATORVASTATIN CALCIUM
  15. GABAPENTIN. [Concomitant]
     Active Substance: GABAPENTIN
  16. COUMADIN [Concomitant]
     Active Substance: WARFARIN SODIUM
  17. TORSEMIDE. [Concomitant]
     Active Substance: TORSEMIDE
  18. GABAPENTIN. [Concomitant]
     Active Substance: GABAPENTIN
  19. SYNTHROID [Concomitant]
     Active Substance: LEVOTHYROXINE SODIUM
  20. DIGOXIN. [Concomitant]
     Active Substance: DIGOXIN

REACTIONS (2)
  - Mechanical ventilation [Not Recovered/Not Resolved]
  - Malaise [Not Recovered/Not Resolved]
